FAERS Safety Report 7824348-3 (Version None)
Quarter: 2011Q4

REPORT INFORMATION
  Report Type: 
  Country: None (occurrence: None)
  Receive Date: 20111019
  Receipt Date: 20111011
  Transmission Date: 20120403
  Serious: Yes (Other)
  Sender: FDA-Public Use
  Company Number: FR-BRISTOL-MYERS SQUIBB COMPANY-16158453

PATIENT
  Age: 65 Year
  Sex: Female

DRUGS (2)
  1. METFORMIN HCL [Suspect]
  2. ONGLYZA [Suspect]
     Indication: DIABETES MELLITUS
     Dosage: ONGLYZA TABS 5 MG

REACTIONS (3)
  - DRUG INTOLERANCE [None]
  - FACE OEDEMA [None]
  - SWOLLEN TONGUE [None]
